FAERS Safety Report 8315785-1 (Version None)
Quarter: 2012Q2

REPORT INFORMATION
  Report Type: 
  Country: None (occurrence: None)
  Receive Date: 20120426
  Receipt Date: 20120413
  Transmission Date: 20120825
  Serious: Yes (Hospitalization)
  Sender: FDA-Public Use
  Company Number: FR-MYLANLABS-2012S1008107

PATIENT
  Age: 26 Year
  Sex: Female

DRUGS (3)
  1. ALLOPURINOL [Concomitant]
     Indication: CROHN'S DISEASE
     Dosage: 100MG A DAY
     Route: 065
     Dates: start: 20100201
  2. MERCAPTOPURINE [Suspect]
     Indication: CROHN'S DISEASE
     Dosage: 25MG
     Route: 065
  3. AZATHIOPRINE [Concomitant]
     Indication: CROHN'S DISEASE
     Route: 065

REACTIONS (2)
  - HEPATITIS [None]
  - HEPATITIS E [None]
